FAERS Safety Report 7937732-4 (Version None)
Quarter: 2011Q4

REPORT INFORMATION
  Report Type: 
  Country: None (occurrence: None)
  Receive Date: 20111123
  Receipt Date: 20111116
  Transmission Date: 20120403
  Serious: Yes (Hospitalization)
  Sender: FDA-Public Use
  Company Number: PHEH2011US009514

PATIENT
  Sex: Female
  Weight: 55.782 kg

DRUGS (4)
  1. VYTORIN [Concomitant]
     Dosage: UNK UKN, UNK
     Route: 048
  2. RECLAST [Suspect]
     Indication: OSTEOPOROSIS
     Dosage: 5 MG/100 ML, ONCE A YEAR
     Route: 042
     Dates: start: 20111108
  3. TOPROL-XL [Concomitant]
     Dosage: UNK UKN, UNK
     Route: 048
  4. CITRACAL + D [Concomitant]
     Dosage: UNK UKN, UNK
     Route: 048

REACTIONS (3)
  - CHEST PAIN [None]
  - PYREXIA [None]
  - PAIN [None]
